FAERS Safety Report 11358185 (Version 1)
Quarter: 2015Q3

REPORT INFORMATION
  Report Type: Spontaneous
  Country: US (occurrence: US)
  Receive Date: 20150803
  Receipt Date: 20150803
  Transmission Date: 20151125
  Serious: No
  Sender: FDA-Public Use
  Company Number: US-ELI_LILLY_AND_COMPANY-US200808002951

PATIENT
  Age: 16 Year
  Sex: Male

DRUGS (2)
  1. COCAINE [Concomitant]
     Active Substance: COCAINE
  2. STRATTERA [Suspect]
     Active Substance: ATOMOXETINE HYDROCHLORIDE
     Dosage: 1.4 MG/KG, DAILY (1/D)

REACTIONS (2)
  - Anxiety [Unknown]
  - Therapeutic response delayed [Unknown]
